FAERS Safety Report 12850750 (Version 1)
Quarter: 2016Q4

REPORT INFORMATION
  Report Type: Spontaneous
  Country: US (occurrence: US)
  Receive Date: 20161014
  Receipt Date: 20161014
  Transmission Date: 20170207
  Serious: No
  Sender: FDA-Public Use
  Company Number: US-ASTRAZENECA-2016SE98770

PATIENT
  Sex: Male

DRUGS (2)
  1. VENTOLINE [Concomitant]
     Active Substance: ALBUTEROL
  2. SYMBICORT [Suspect]
     Active Substance: BUDESONIDE\FORMOTEROL FUMARATE DIHYDRATE
     Dosage: 400, DOSE AND FREQUENCY UNKNOWN UNKNOWN
     Route: 055

REACTIONS (4)
  - Hyperhidrosis [Unknown]
  - Feeling abnormal [Unknown]
  - Dyspnoea [Unknown]
  - Body temperature abnormal [Unknown]
